FAERS Safety Report 7026786-8 (Version None)
Quarter: 2010Q4

REPORT INFORMATION
  Report Type: 
  Country: None (occurrence: None)
  Receive Date: 20101004
  Receipt Date: 20100922
  Transmission Date: 20110411
  Serious: Yes (Other)
  Sender: FDA-Public Use
  Company Number: US-ROCHE-725094

PATIENT
  Sex: Male

DRUGS (4)
  1. PEGINTERFERON ALFA-2A [Suspect]
     Indication: HEPATITIS C
     Dosage: FORM: PREFILLED SYRINGE
     Route: 065
     Dates: start: 20100804
  2. PEGINTERFERON ALFA-2A [Suspect]
     Route: 065
  3. PEGINTERFERON ALFA-2A [Suspect]
     Route: 065
  4. RIBASPHERE [Suspect]
     Indication: HEPATITIS C
     Dosage: DIVIDED DOSES DAILY
     Route: 048
     Dates: start: 20100804

REACTIONS (7)
  - DIZZINESS [None]
  - LUNG DISORDER [None]
  - NAUSEA [None]
  - PLATELET COUNT DECREASED [None]
  - PULMONARY MASS [None]
  - URTICARIA [None]
  - VISION BLURRED [None]
